FAERS Safety Report 16456067 (Version 1)
Quarter: 2019Q2

REPORT INFORMATION
  Report Type: Spontaneous
  Country: JP (occurrence: JP)
  Receive Date: 20190620
  Receipt Date: 20190620
  Transmission Date: 20190711
  Serious: Yes (Other)
  Sender: FDA-Public Use
  Company Number: JP-ACTELION-A-CH2017-155918

PATIENT
  Age: 71 Year
  Sex: Female

DRUGS (16)
  1. DAIMEDIN [Concomitant]
  2. FERROSTEC [Concomitant]
     Active Substance: SODIUM FERROUS CITRATE
  3. FEBURIC [Concomitant]
     Active Substance: FEBUXOSTAT
  4. VOGLIBOSE [Concomitant]
     Active Substance: VOGLIBOSE
  5. ADCIRCA [Concomitant]
     Active Substance: TADALAFIL
  6. MAGNESIUM OXIDE. [Concomitant]
     Active Substance: MAGNESIUM OXIDE
  7. FUROSEMIDE. [Concomitant]
     Active Substance: FUROSEMIDE
  8. OPSUMIT [Suspect]
     Active Substance: MACITENTAN
     Indication: PULMONARY ARTERIAL HYPERTENSION
     Dosage: 10 MG, QD
     Route: 048
     Dates: start: 20170304, end: 20170307
  9. BAYASPIRIN [Concomitant]
     Active Substance: ASPIRIN
  10. FAMOTIDINE. [Concomitant]
     Active Substance: FAMOTIDINE
  11. IMIDAPRIL HYDROCHLORIDE [Concomitant]
     Active Substance: IMIDAPRIL HYDROCHLORIDE
  12. MAINTATE [Concomitant]
     Active Substance: BISOPROLOL FUMARATE
  13. DOBUTAMINE [Concomitant]
     Active Substance: DOBUTAMINE\DOBUTAMINE HYDROCHLORIDE
  14. WARFARIN [Concomitant]
     Active Substance: WARFARIN
  15. EBRANTIL [Concomitant]
     Active Substance: URAPIDIL
  16. KALLIDINOGENASE [Concomitant]
     Active Substance: KALLIDINOGENASE

REACTIONS (3)
  - Transfusion [Unknown]
  - Anaemia [Recovering/Resolving]
  - Concomitant disease progression [Recovering/Resolving]

NARRATIVE: CASE EVENT DATE: 20170306
